FAERS Safety Report 11221656 (Version 1)
Quarter: 2015Q2

REPORT INFORMATION
  Report Type: Spontaneous
  Country: US (occurrence: None)
  Receive Date: 20150625
  Receipt Date: 20150625
  Transmission Date: 20150821
  Serious: Yes (Other)
  Sender: FDA-Public Use
  Company Number: None

PATIENT
  Age: 70 Year
  Sex: Female
  Weight: 56.7 kg

DRUGS (2)
  1. FAMILY WELLNESS IRRITATION RELIEF AC EYE DROPS [Suspect]
     Active Substance: TETRAHYDROZOLINE HYDROCHLORIDE\ZINC SULFATE
     Indication: DRY EYE
     Dosage: INTO THE EYE
     Dates: start: 20150620, end: 20150620
  2. FAMILY WELLNESS IRRITATION RELIEF AC EYE DROPS [Suspect]
     Active Substance: TETRAHYDROZOLINE HYDROCHLORIDE\ZINC SULFATE
     Indication: MULTIPLE ALLERGIES
     Dosage: INTO THE EYE
     Dates: start: 20150620, end: 20150620

REACTIONS (1)
  - Eye irritation [None]

NARRATIVE: CASE EVENT DATE: 20150620
